FAERS Safety Report 7907302-2 (Version None)
Quarter: 2011Q4

REPORT INFORMATION
  Report Type: 
  Country: None (occurrence: None)
  Receive Date: 20111109
  Receipt Date: 20111109
  Transmission Date: 20120403
  Serious: Yes (Hospitalization)
  Sender: FDA-Public Use
  Company Number: None

PATIENT
  Sex: Male
  Weight: 139 kg

DRUGS (7)
  1. DEXAMETHASONE [Suspect]
     Dosage: 110 MG
  2. VINCRISTINE SULFATE [Suspect]
     Dosage: 1 MG
  3. G-CSF (FILGRASTIM, AMGEN) [Suspect]
     Dosage: 5130 MCG
  4. METHOTREXATE [Suspect]
     Dosage: 3340 MG
  5. RITUXIMAB (MOAB C2B8 ANTI CD20, CHIMERIC) [Suspect]
     Dosage: 800 MG
  6. CYCLOPHOSPHAMIDE [Suspect]
     Dosage: 2200 MG
  7. DOXORUBICIN HCL [Suspect]
     Dosage: 112MG

REACTIONS (2)
  - DYSPNOEA [None]
  - ACUTE MYELOID LEUKAEMIA [None]
